FAERS Safety Report 9087494 (Version 1)
Quarter: 2013Q1

REPORT INFORMATION
  Report Type: Spontaneous
  Country: DK (occurrence: IT)
  Receive Date: 20130201
  Receipt Date: 20130201
  Transmission Date: 20140127
  Serious: Yes (Hospitalization)
  Sender: FDA-Public Use
  Company Number: IT-FRI-1000042346

PATIENT
  Age: 78 Year
  Sex: Male

DRUGS (8)
  1. ESCITALOPRAM ORAL SOLUTION [Suspect]
     Dosage: 10 MG
     Route: 048
     Dates: start: 20110101, end: 20130115
  2. SINTROM [Suspect]
     Dosage: 1 MG
     Route: 048
     Dates: start: 20110101, end: 20130115
  3. CORDARONE [Suspect]
     Dosage: 200 MG
     Route: 048
     Dates: start: 20110101, end: 20130115
  4. LANSOX [Concomitant]
     Dosage: 15 MG
     Route: 048
  5. LANOXIN [Concomitant]
     Route: 048
  6. HALDOL [Concomitant]
     Dosage: 16 DROPS DAILY
     Route: 048
  7. TAVOR [Concomitant]
     Route: 048
  8. CALCIUM SANDOZ [Concomitant]
     Route: 048

REACTIONS (2)
  - Rectal haemorrhage [Recovering/Resolving]
  - Haematuria [Recovering/Resolving]
